FAERS Safety Report 8333908 (Version 2)
Quarter: 2013Q2

REPORT INFORMATION
  Report Type: Spontaneous
  Country: US (occurrence: None)
  Receive Date: 20111130
  Receipt Date: 20120731
  Transmission Date: 20140414
  Serious: Yes (Other)
  Sender: FDA-Public Use
  Company Number: US201107004561

PATIENT
  Age: 52 Year
  Sex: Male

DRUGS (18)
  1. BYETTA [Suspect]
     Dosage: UNK
     Route: 058
     Dates: start: 2006, end: 2007
  2. PREDNISONE (PREDNISONE) [Concomitant]
  3. LEVAQUIN (LEVOFLOXACIN) [Concomitant]
  4. XANAX (ALPRAZOLAM) [Concomitant]
  5. AMBIEN (ZOLPIDEM TARTRATE) [Concomitant]
  6. SINGULAIR (MONTELUKAST SODIUM) [Concomitant]
  7. METFORMIN (METFORMIN) [Concomitant]
  8. INDERAL LA (PROPRANOLOL HYDROCHLORIDE) [Concomitant]
  9. ALTACE (RAMIPRIL) [Concomitant]
  10. VYTORIN (EZETIMBE, SIMVASTATIN) [Concomitant]
  11. ALBUTEROL (SALBUTAMOL) [Concomitant]
  12. NEUROTIN /00949202/ (ACETYLCARNITINE HYDROCHLORIDE) [Concomitant]
  13. LORTAB (HYDROCODONE BITARTRATE, PARACETAMOL) [Concomitant]
  14. DARVOCET (DEXTROPROPOXYPHENE NAPSILATE, PARACETAMOL) [Concomitant]
  15. AMARYL (GLIMEPIRIDE) [Concomitant]
  16. TRICOR (FENOFIBRATE) [Concomitant]
  17. MAGNESIUM (MAGNESIUM) [Concomitant]
  18. IMDUR (ISOSORBIDE MONONITRATE) [Concomitant]

REACTIONS (1)
  - RENAL FAILURE [None]
